FAERS Safety Report 5410009-7 (Version None)
Quarter: 2007Q3

REPORT INFORMATION
  Report Type: 
  Country: None (occurrence: None)
  Receive Date: 20070809
  Receipt Date: 20070730
  Transmission Date: 20080115
  Serious: Yes (Other)
  Sender: FDA-Public Use
  Company Number: US-PFIZER INC-2007064797

PATIENT
  Sex: Female
  Weight: 77.272 kg

DRUGS (7)
  1. CHANTIX [Suspect]
     Indication: SMOKING CESSATION THERAPY
     Dates: start: 20070723, end: 20070729
  2. ZOCOR [Concomitant]
  3. LEXAPRO [Concomitant]
  4. ARIMIDEX [Concomitant]
  5. VITAMIN E [Concomitant]
  6. CALCIUM CHLORIDE [Concomitant]
  7. FOSAMAX PLUS D [Concomitant]

REACTIONS (8)
  - ANAEMIA [None]
  - DIZZINESS [None]
  - FEELING ABNORMAL [None]
  - LIGAMENT RUPTURE [None]
  - MALAISE [None]
  - MOOD ALTERED [None]
  - NAUSEA [None]
  - STOMACH DISCOMFORT [None]
